FAERS Safety Report 12420422 (Version 2)
Quarter: 2017Q2

REPORT INFORMATION
  Report Type: Spontaneous
  Country: US (occurrence: US)
  Receive Date: 20160531
  Receipt Date: 20170626
  Transmission Date: 20170830
  Serious: No
  Sender: FDA-Public Use
  Company Number: US-PFIZER INC-2016253364

PATIENT
  Age: 91 Year
  Sex: Female

DRUGS (4)
  1. LYRICA [Suspect]
     Active Substance: PREGABALIN
     Indication: NEUROPATHY PERIPHERAL
     Dosage: 75 MG, 2X/DAY
  2. LYRICA [Suspect]
     Active Substance: PREGABALIN
     Dosage: UNK UNK, 2X/DAY (TOOK ONE AT 9 AND WILL TAKE ANOTHER ONE AT 9 TONIGHT)
  3. BABY ASPIRIN [Concomitant]
     Active Substance: ASPIRIN
     Dosage: UNK
  4. LYRICA [Suspect]
     Active Substance: PREGABALIN
     Dosage: 1 DF, UNK

REACTIONS (6)
  - Expired product administered [Unknown]
  - Joint swelling [Unknown]
  - Intentional product use issue [Unknown]
  - Peripheral swelling [Unknown]
  - Swelling [Unknown]
  - Hyperhidrosis [Unknown]
